FAERS Safety Report 4359477-2 (Version None)
Quarter: 2004Q2

REPORT INFORMATION
  Report Type: 
  Country: None (occurrence: None)
  Receive Date: 20040512
  Receipt Date: 20040430
  Transmission Date: 20050107
  Serious: Yes (Death)
  Sender: FDA-Public Use
  Company Number: 163-20785-04010139

PATIENT
  Age: 42 Year
  Sex: Male

DRUGS (1)
  1. THALOMID [Suspect]
     Indication: MYELODYSPLASTIC SYNDROME
     Dosage: 800 MG DAILY ORAL
     Route: 048
     Dates: start: 20030801, end: 20031101

REACTIONS (3)
  - DISEASE PROGRESSION [None]
  - LEUKAEMIA [None]
  - SEPSIS [None]
